FAERS Safety Report 5867393-X (Version None)
Quarter: 2008Q3

REPORT INFORMATION
  Report Type: 
  Country: None (occurrence: None)
  Receive Date: 20080902
  Receipt Date: 20080828
  Transmission Date: 20090109
  Serious: Yes (Other)
  Sender: FDA-Public Use
  Company Number: PHHY2008AU19407

PATIENT
  Sex: Female

DRUGS (2)
  1. TEGRETOL [Suspect]
     Indication: CONVULSION
     Dosage: UNK
     Route: 048
  2. SCANDONEST L [Concomitant]

REACTIONS (5)
  - CONVULSION [None]
  - ERYTHEMA [None]
  - FEELING ABNORMAL [None]
  - HOT FLUSH [None]
  - MUSCLE CONTRACTIONS INVOLUNTARY [None]
